FAERS Safety Report 8369805-9 (Version None)
Quarter: 2012Q1

REPORT INFORMATION
  Report Type: 
  Country: None (occurrence: None)
  Receive Date: 20120323
  Receipt Date: 20110119
  Transmission Date: 20120608
  Serious: Yes (Hospitalization)
  Sender: FDA-Public Use
  Company Number: 163-21880-11012201

PATIENT
  Age: 78 Year
  Sex: Male

DRUGS (15)
  1. MULTI 50+ FOR HIM (ALL OTHER THERAPEUTIC PRODUCTS) [Concomitant]
  2. MAGNESIUM (MAGNESIUM) [Concomitant]
  3. LOVENOX [Concomitant]
  4. LEVOTHYROXINE SODIUM [Concomitant]
  5. COUMADIN [Concomitant]
  6. REVLIMID [Suspect]
     Indication: MULTIPLE MYELOMA
     Dosage: 25 MG, QD X21D OFF 7D, PO
     Route: 048
     Dates: start: 20090201
  7. PANCREAZE [Concomitant]
  8. AVODART [Concomitant]
  9. CALCIUM +D (OS-CAL) [Concomitant]
  10. IMODIUM [Concomitant]
  11. FLOMAX [Concomitant]
  12. DEXAMETHASONE [Concomitant]
  13. RESTORIL [Concomitant]
  14. AMBIEN [Concomitant]
  15. BYSTOLIC [Concomitant]

REACTIONS (2)
  - MUSCLE SPASMS [None]
  - RED BLOOD CELL COUNT DECREASED [None]
